FAERS Safety Report 5526566-6 (Version None)
Quarter: 2007Q4

REPORT INFORMATION
  Report Type: 
  Country: None (occurrence: None)
  Receive Date: 20071121
  Receipt Date: 20071121
  Transmission Date: 20080405
  Serious: Yes (Hospitalization)
  Sender: FDA-Public Use
  Company Number: None

PATIENT
  Sex: Female
  Weight: 97.3 kg

DRUGS (11)
  1. BYETTA [Suspect]
     Indication: DIABETES MELLITUS
     Dosage: 5MCG TWICE DAILY SQ
     Route: 058
  2. LISINOPRIL [Concomitant]
  3. TOPROL-XL [Concomitant]
  4. NEURONTIN [Concomitant]
  5. LIPITOR [Concomitant]
  6. METFORMIN HCL [Concomitant]
  7. PLAVIX [Concomitant]
  8. ASPIRIN [Concomitant]
  9. PAROXETINE [Concomitant]
  10. PREVACID [Concomitant]
  11. NIASPAN [Concomitant]

REACTIONS (1)
  - PANCREATITIS ACUTE [None]
